FAERS Safety Report 22970985 (Version 2)
Quarter: 2023Q4

REPORT INFORMATION
  Report Type: Report from Study
  Country: US (occurrence: US)
  Receive Date: 20230922
  Receipt Date: 20231009
  Transmission Date: 20240109
  Serious: Yes (Hospitalization, Other)
  Sender: FDA-Public Use
  Company Number: US-OTSUKA-2023_024670

PATIENT
  Age: 23 Year
  Sex: Female

DRUGS (4)
  1. ARIPIPRAZOLE [Suspect]
     Active Substance: ARIPIPRAZOLE
     Indication: Bipolar disorder
     Dosage: 300 MG EVERY 4 WEEKS
     Route: 030
     Dates: start: 20210901
  2. ARIPIPRAZOLE [Suspect]
     Active Substance: ARIPIPRAZOLE
     Dosage: 400 MG EVERY 4 WEEKS
     Route: 030
     Dates: start: 20220216
  3. QUETIAPINE [Concomitant]
     Active Substance: QUETIAPINE
     Indication: Product used for unknown indication
     Dosage: 225 MG, QD (EVERY NIGHT AT BEDTIME)
     Route: 065
     Dates: start: 20230807
  4. ALPRAZOLAM [Concomitant]
     Active Substance: ALPRAZOLAM
     Indication: Product used for unknown indication
     Dosage: 0.5 MG, AS NECESSARY (PRN)
     Route: 065
     Dates: start: 20230807

REACTIONS (4)
  - Impaired gastric emptying [Unknown]
  - Cyclic vomiting syndrome [Unknown]
  - Pulmonary embolism [Unknown]
  - Underdose [Unknown]

NARRATIVE: CASE EVENT DATE: 20210901
